FAERS Safety Report 7291408-8 (Version None)
Quarter: 2011Q1

REPORT INFORMATION
  Report Type: 
  Country: None (occurrence: None)
  Receive Date: 20110214
  Receipt Date: 20110208
  Transmission Date: 20110831
  Serious: Yes (Other)
  Sender: FDA-Public Use
  Company Number: B0699100A

PATIENT
  Sex: Male

DRUGS (1)
  1. VALTREX [Suspect]
     Indication: HERPES VIRUS INFECTION
     Dosage: 2G PER DAY
     Route: 048
     Dates: start: 20101218, end: 20101223

REACTIONS (2)
  - ENCEPHALOPATHY [None]
  - STEVENS-JOHNSON SYNDROME [None]
